FAERS Safety Report 7409274-6 (Version None)
Quarter: 2011Q2

REPORT INFORMATION
  Report Type: 
  Country: None (occurrence: None)
  Receive Date: 20110412
  Receipt Date: 20110408
  Transmission Date: 20111010
  Serious: Yes (Other)
  Sender: FDA-Public Use
  Company Number: A0922062A

PATIENT
  Sex: Female

DRUGS (1)
  1. ZEASORB- AF POWDER (ATHLETES FOOT) [Suspect]
     Route: 061

REACTIONS (2)
  - TOXICITY TO VARIOUS AGENTS [None]
  - RASH [None]
